FAERS Safety Report 10187396 (Version 3)
Quarter: 2014Q3

REPORT INFORMATION
  Report Type: Spontaneous
  Country: IT (occurrence: None)
  Receive Date: 20140520
  Receipt Date: 20140807
  Transmission Date: 20150326
  Serious: Yes (Hospitalization)
  Sender: FDA-Public Use
  Company Number: AUR-APL-2014-05883

PATIENT
  Age: 71 Year
  Sex: Male

DRUGS (2)
  1. RAMIPRIL. [Suspect]
     Active Substance: RAMIPRIL
     Indication: PRODUCT USED FOR UNKNOWN INDICATION
     Dosage: 10 MG, 1 D
     Route: 048
     Dates: start: 20140506, end: 20140509
  2. CARDIOASPIRIN (ACETYLSALICYLIC ACID) [Concomitant]
     Active Substance: ASPIRIN

REACTIONS (2)
  - Hypotension [None]
  - Tachycardia [None]

NARRATIVE: CASE EVENT DATE: 20140507
